FAERS Safety Report 18845231 (Version 1)
Quarter: 2021Q1

REPORT INFORMATION
  Report Type: Report from Study
  Country: US (occurrence: US)
  Receive Date: 20210203
  Receipt Date: 20210203
  Transmission Date: 20210419
  Serious: No
  Sender: FDA-Public Use
  Company Number: US-EXELIXIS-CABO-20031726

PATIENT
  Age: 80 Year
  Sex: Male

DRUGS (1)
  1. CABOMETYX [Suspect]
     Active Substance: CABOZANTINIB S-MALATE
     Indication: RENAL CANCER
     Dosage: 60 MG
     Dates: start: 20200707, end: 20200724

REACTIONS (6)
  - Gait disturbance [Recovering/Resolving]
  - Rib fracture [Unknown]
  - Fall [Unknown]
  - Decreased appetite [Unknown]
  - Asthenia [Recovering/Resolving]
  - Radiation dysphagia [Unknown]

NARRATIVE: CASE EVENT DATE: 202007
